FAERS Safety Report 5179744-2 (Version None)
Quarter: 2006Q4

REPORT INFORMATION
  Report Type: 
  Country: None (occurrence: None)
  Receive Date: 20061212
  Receipt Date: 20061129
  Transmission Date: 20070319
  Serious: Yes (Hospitalization)
  Sender: FDA-Public Use
  Company Number: 2006112589

PATIENT
  Age: 72 Year
  Sex: Female
  Weight: 58.6 kg

DRUGS (8)
  1. INHALED HUMAN INSULIN (INHALED HUMAN INSULIN) [Suspect]
     Indication: DIABETES MELLITUS NON-INSULIN-DEPENDENT
     Dosage: 7 MG (3 IN 1 D), ORAL
     Route: 048
     Dates: start: 20051122, end: 20061013
  2. ZOCOR [Concomitant]
  3. LOSARTAN POTASSIUM [Concomitant]
  4. LACTULOSE [Concomitant]
  5. FOSAMAX [Concomitant]
  6. FERROUS SULFATE TAB [Concomitant]
  7. GLUCOPHAGE [Concomitant]
  8. GLUCOR (ACARBOSE) [Concomitant]

REACTIONS (6)
  - DERMATITIS [None]
  - FATIGUE [None]
  - OEDEMA PERIPHERAL [None]
  - PRURIGO [None]
  - PYREXIA [None]
  - RASH PUSTULAR [None]
